FAERS Safety Report 8971530 (Version 2)
Quarter: 2013Q1

REPORT INFORMATION
  Report Type: Spontaneous
  Country: FR (occurrence: FR)
  Receive Date: 20121217
  Receipt Date: 20130226
  Transmission Date: 20140127
  Serious: Yes (Hospitalization, Other)
  Sender: FDA-Public Use
  Company Number: FR-UCBSA-069872

PATIENT
  Age: 35 Year
  Sex: Female
  Weight: 98 kg

DRUGS (3)
  1. KEPPRA [Suspect]
     Indication: JUVENILE MYOCLONIC EPILEPSY
     Dosage: DAILY DOSE: 1 G
     Route: 048
     Dates: start: 2007
  2. KEPPRA [Suspect]
     Indication: JUVENILE MYOCLONIC EPILEPSY
     Route: 048
     Dates: start: 200710
  3. SPECIAFOLDINE [Concomitant]
     Route: 048

REACTIONS (3)
  - Grand mal convulsion [Unknown]
  - Gestational hypertension [Unknown]
  - Pregnancy [Recovered/Resolved]
